FAERS Safety Report 4996408-6 (Version None)
Quarter: 2006Q2

REPORT INFORMATION
  Report Type: 
  Country: None (occurrence: None)
  Receive Date: 20060505
  Receipt Date: 20060426
  Transmission Date: 20061013
  Serious: Yes (Other)
  Sender: FDA-Public Use
  Company Number: 2005-06-0048

PATIENT
  Age: 70 Year
  Sex: Male
  Weight: 57 kg

DRUGS (6)
  1. PEG-INTRON [Suspect]
     Indication: HEPATITIS C
     Dosage: 80-60 MCG, QW; SUBCUTANEOUS (SEE IMAGE)
     Route: 058
     Dates: start: 20050128, end: 20050310
  2. PEG-INTRON [Suspect]
     Indication: HEPATITIS C
     Dosage: 80-60 MCG, QW; SUBCUTANEOUS (SEE IMAGE)
     Route: 058
     Dates: start: 20050128, end: 20050318
  3. PEG-INTRON [Suspect]
     Indication: HEPATITIS C
     Dosage: 80-60 MCG, QW; SUBCUTANEOUS (SEE IMAGE)
     Route: 058
     Dates: start: 20050311, end: 20050318
  4. REBETOL [Suspect]
     Indication: HEPATITIS C
     Dosage: 600-400 MG; ORAL
     Route: 048
     Dates: start: 20050128, end: 20050210
  5. REBETOL [Suspect]
     Indication: HEPATITIS C
     Dosage: 600-400 MG; ORAL
     Route: 048
     Dates: start: 20050128, end: 20050311
  6. REBETOL [Suspect]
     Indication: HEPATITIS C
     Dosage: 600-400 MG; ORAL
     Route: 048
     Dates: start: 20050211, end: 20050311

REACTIONS (7)
  - CHOREA [None]
  - CONDITION AGGRAVATED [None]
  - HAEMOGLOBIN DECREASED [None]
  - HYPOAESTHESIA [None]
  - HYPOTONIA [None]
  - MALAISE [None]
  - MUSCULAR WEAKNESS [None]
